FAERS Safety Report 14175716 (Version 1)
Quarter: 2017Q4

REPORT INFORMATION
  Report Type: Report from Study
  Country: BE (occurrence: BE)
  Receive Date: 20171109
  Receipt Date: 20171109
  Transmission Date: 20180321
  Serious: Yes (Hospitalization)
  Sender: FDA-Public Use
  Company Number: PHHY2017BE151365

PATIENT
  Age: 38 Year
  Sex: Male
  Weight: 102 kg

DRUGS (1)
  1. ENTRESTO [Suspect]
     Active Substance: SACUBITRIL\VALSARTAN
     Indication: CARDIAC FAILURE
     Dosage: 1 DF (97/103MG), UNK
     Route: 048
     Dates: start: 20170517

REACTIONS (2)
  - Cardiac disorder [Unknown]
  - Cardiac failure [Unknown]

NARRATIVE: CASE EVENT DATE: 20171008
